FAERS Safety Report 7823427-4 (Version None)
Quarter: 2011Q4

REPORT INFORMATION
  Report Type: 
  Country: None (occurrence: None)
  Receive Date: 20111014
  Receipt Date: 20111005
  Transmission Date: 20120403
  Serious: Yes (Hospitalization)
  Sender: FDA-Public Use
  Company Number: 2010US003983

PATIENT
  Age: 64 Year
  Sex: Female
  Weight: 127.0072 kg

DRUGS (10)
  1. CELEXA [Concomitant]
  2. IMURAN [Concomitant]
  3. PRILOSEC (OMEPRAZOLE MAGNESIUM) [Concomitant]
  4. MAGNESIUM (MAGNESIUM) [Concomitant]
  5. PROGRAF [Suspect]
     Indication: LIVER TRANSPLANT
     Dosage: 2 MG, BID, ORAL
     Route: 048
     Dates: start: 20090714
  6. BACTRIM [Concomitant]
  7. VALCYTE [Concomitant]
  8. XANAX [Concomitant]
  9. LASIX [Concomitant]
  10. MIRALAX [Concomitant]

REACTIONS (5)
  - ABDOMINAL CAVITY DRAINAGE [None]
  - DEHYDRATION [None]
  - VASCULAR SHUNT [None]
  - NAUSEA [None]
  - VOMITING [None]
